FAERS Safety Report 4872811-X (Version None)
Quarter: 2006Q1

REPORT INFORMATION
  Report Type: 
  Country: None (occurrence: None)
  Receive Date: 20060105
  Receipt Date: 20040517
  Transmission Date: 20060701
  Serious: Yes (Hospitalization)
  Sender: FDA-Public Use
  Company Number: AU-ABBOTT-04P-008-0261815-00

PATIENT
  Sex: Male

DRUGS (6)
  1. FENOFIBRATE [Suspect]
     Indication: DYSLIPIDAEMIA
     Route: 048
     Dates: start: 20000704
  2. ASPIRIN [Concomitant]
     Indication: DRUG USE FOR UNKNOWN INDICATION
     Dates: start: 19971001, end: 20020523
  3. TENOXICAM [Concomitant]
     Indication: DRUG USE FOR UNKNOWN INDICATION
     Dates: start: 19980101, end: 20020523
  4. PERINDOPRIL [Concomitant]
     Indication: DRUG USE FOR UNKNOWN INDICATION
     Dates: start: 20010301
  5. METFORMIN HYDROCHLORIDE [Concomitant]
     Indication: DRUG USE FOR UNKNOWN INDICATION
     Dates: start: 20010901, end: 20020616
  6. GLICLAZIDE [Concomitant]
     Indication: DRUG USE FOR UNKNOWN INDICATION
     Dates: start: 20020326, end: 20020816

REACTIONS (1)
  - PULMONARY EMBOLISM [None]
